FAERS Safety Report 4362189-2 (Version None)
Quarter: 2004Q2

REPORT INFORMATION
  Report Type: 
  Country: None (occurrence: None)
  Receive Date: 20040517
  Receipt Date: 20040503
  Transmission Date: 20050107
  Serious: Yes (Hospitalization)
  Sender: FDA-Public Use
  Company Number: 04P-163-0259510-00

PATIENT
  Age: 38 Year
  Sex: Male

DRUGS (5)
  1. DEPAKOTE [Suspect]
     Dosage: SEE IMAGE
  2. LEXAPRO [Suspect]
     Indication: DEPRESSION
     Dosage: SEE IMAGE
     Dates: start: 20040419, end: 20040419
  3. OLANZAPINE [Suspect]
     Indication: OVERDOSE
     Dates: start: 20040419, end: 20040419
  4. ETHANOL [Suspect]
     Dates: start: 20040419, end: 20040419
  5. COCAINE [Suspect]
     Dates: start: 20040419

REACTIONS (3)
  - COMA [None]
  - ELECTROCARDIOGRAM ST SEGMENT [None]
  - MULTIPLE DRUG OVERDOSE [None]
